FAERS Safety Report 17566840 (Version 4)
Quarter: 2020Q1

REPORT INFORMATION
  Report Type: Spontaneous
  Country: US (occurrence: US)
  Receive Date: 20200320
  Receipt Date: 20200331
  Transmission Date: 20200409
  Serious: No
  Sender: FDA-Public Use
  Company Number: US-PFIZER INC-2020109041

PATIENT
  Age: 83 Year
  Sex: Male

DRUGS (3)
  1. INLYTA [Suspect]
     Active Substance: AXITINIB
     Indication: RENAL CANCER
     Dosage: 5 MG, UNK
  2. KETONA [Concomitant]
     Dosage: UNK
  3. KEYTRUDA [Concomitant]
     Active Substance: PEMBROLIZUMAB
     Dosage: UNK

REACTIONS (5)
  - Confusional state [Unknown]
  - Hypersomnia [Unknown]
  - Neoplasm progression [Unknown]
  - Limb discomfort [Unknown]
  - Fatigue [Unknown]
